FAERS Safety Report 7446226-4 (Version None)
Quarter: 2011Q2

REPORT INFORMATION
  Report Type: 
  Country: None (occurrence: None)
  Receive Date: 20110429
  Receipt Date: 20110419
  Transmission Date: 20111010
  Serious: Yes (Disabling, Other)
  Sender: FDA-Public Use
  Company Number: FR-JNJFOC-20110204747

PATIENT
  Age: 81 Year
  Sex: Male

DRUGS (7)
  1. LEVOFLOXACIN [Suspect]
     Indication: BRONCHITIS
     Route: 048
  2. LEVOFLOXACIN [Suspect]
     Indication: SINUSITIS
     Route: 048
  3. LEVOFLOXACIN [Suspect]
     Route: 048
  4. LEVOFLOXACIN [Suspect]
     Route: 048
  5. FENOTEROL HYDROBROMIDE [Concomitant]
     Route: 065
  6. IPRATROPIUM BROMIDE [Concomitant]
     Route: 065
  7. COZAAR [Concomitant]
     Route: 065

REACTIONS (1)
  - TENDON RUPTURE [None]
